FAERS Safety Report 6996827-2 (Version None)
Quarter: 2010Q3

REPORT INFORMATION
  Report Type: 
  Country: None (occurrence: None)
  Receive Date: 20100918
  Receipt Date: 20090715
  Transmission Date: 20110219
  Serious: No
  Sender: FDA-Public Use
  Company Number: US-WYE-H10181509

PATIENT
  Sex: Female
  Weight: 72.64 kg

DRUGS (9)
  1. EFFEXOR XR [Suspect]
     Indication: HOT FLUSH
     Route: 048
     Dates: start: 20090415, end: 20090501
  2. EFFEXOR XR [Suspect]
     Route: 048
     Dates: start: 20090501, end: 20090501
  3. EFFEXOR XR [Suspect]
     Route: 048
     Dates: start: 20090501
  4. NEXIUM [Concomitant]
  5. MAXALT [Concomitant]
  6. ALEVE (CAPLET) [Concomitant]
  7. TOPROL-XL [Concomitant]
  8. XANAX [Concomitant]
  9. HYDROCODONE [Concomitant]

REACTIONS (6)
  - AFFECT LABILITY [None]
  - ANXIETY [None]
  - CRYING [None]
  - DRUG WITHDRAWAL SYNDROME [None]
  - HYPERHIDROSIS [None]
  - PARAESTHESIA [None]
